FAERS Safety Report 7733302 (Version 2)
Quarter: 2016Q3

REPORT INFORMATION
  Report Type: Spontaneous
  Country: GB (occurrence: GB)
  Receive Date: 20101223
  Receipt Date: 20160818
  Transmission Date: 20161109
  Serious: Yes (Hospitalization, Other)
  Sender: FDA-Public Use
  Company Number: GB-JNJFOC-20101206204

PATIENT
  Age: 32 Year
  Sex: Female
  Weight: 44 kg

DRUGS (2)
  1. PARACETAMOL [Suspect]
     Active Substance: ACETAMINOPHEN
     Route: 048
  2. PARACETAMOL [Suspect]
     Active Substance: ACETAMINOPHEN
     Indication: ALCOHOL WITHDRAWAL SYNDROME
     Route: 048

REACTIONS (1)
  - Acute hepatic failure [Recovered/Resolved]
